FAERS Safety Report 11925276 (Version 1)
Quarter: 2016Q1

REPORT INFORMATION
  Report Type: Other
  Country: KR (occurrence: KR)
  Receive Date: 20160118
  Receipt Date: 20160118
  Transmission Date: 20160526
  Serious: Yes (Death, Other)
  Sender: FDA-Public Use
  Company Number: KR-DEP_13400_2016

PATIENT
  Age: 65 Year
  Sex: Male

DRUGS (8)
  1. GABAPENTIN. [Concomitant]
     Active Substance: GABAPENTIN
     Indication: PAIN
     Dosage: DF
  2. OXYCODONE [Suspect]
     Active Substance: OXYCODONE
     Indication: PAIN
     Dosage: DF
     Route: 042
  3. FENTANYL. [Suspect]
     Active Substance: FENTANYL
     Indication: PAIN
     Dosage: DF
     Route: 042
  4. MORPHINE EQUIVALENT DAILY DOSE (MEDD) [Suspect]
     Active Substance: MORPHINE
     Indication: PAIN
  5. DEXAMETHASONE. [Concomitant]
     Active Substance: DEXAMETHASONE
     Indication: PAIN
     Dosage: DF
  6. MORPHINE EQUIVALENT DAILY DOSE (MEDD) [Suspect]
     Active Substance: MORPHINE
     Dosage: DF
  7. KETAMINE [Concomitant]
     Active Substance: KETAMINE
     Indication: PAIN
     Dosage: DF
  8. DICLOFENAC [Concomitant]
     Active Substance: DICLOFENAC
     Indication: PAIN
     Dosage: DF

REACTIONS (2)
  - Delirium [Recovering/Resolving]
  - Death [Fatal]
